FAERS Safety Report 14872730 (Version 1)
Quarter: 2018Q2

REPORT INFORMATION
  Report Type: Report from Study
  Country: US (occurrence: US)
  Receive Date: 20180510
  Receipt Date: 20180510
  Transmission Date: 20180711
  Serious: Yes (Hospitalization)
  Sender: FDA-Public Use
  Company Number: US-ASTRAZENECA-2018SE61445

PATIENT
  Sex: Female
  Weight: 43.1 kg

DRUGS (6)
  1. METOPROLOL SUCCINATE. [Suspect]
     Active Substance: METOPROLOL SUCCINATE
     Route: 048
  2. JENDUETO [Concomitant]
  3. BRILINTA [Suspect]
     Active Substance: TICAGRELOR
     Indication: STENT PLACEMENT
     Route: 048
     Dates: start: 20180413
  4. CRESTOR [Suspect]
     Active Substance: ROSUVASTATIN CALCIUM
     Indication: BLOOD CHOLESTEROL ABNORMAL
     Route: 048
  5. TRASADONE [Concomitant]
     Indication: INSOMNIA
     Dosage: 50.0MG AS REQUIRED
  6. ASPIRIN. [Concomitant]
     Active Substance: ASPIRIN

REACTIONS (6)
  - Malaise [Unknown]
  - Blood cholesterol abnormal [Unknown]
  - Insomnia [Unknown]
  - Memory impairment [Unknown]
  - Myocardial infarction [Unknown]
  - Confusional state [Unknown]
